FAERS Safety Report 7534774-8 (Version None)
Quarter: 2011Q2

REPORT INFORMATION
  Report Type: 
  Country: None (occurrence: None)
  Receive Date: 20110609
  Receipt Date: 20080814
  Transmission Date: 20111010
  Serious: Yes (Death, Life-Threatening, Hospitalization)
  Sender: FDA-Public Use
  Company Number: PHHY2008GB14252

PATIENT
  Sex: Male

DRUGS (1)
  1. CLOZAPINE [Suspect]
     Indication: SCHIZOPHRENIA
     Dates: start: 20080603, end: 20080709

REACTIONS (5)
  - MALAISE [None]
  - DEATH [None]
  - HAEMATEMESIS [None]
  - DIARRHOEA [None]
  - FLUID INTAKE REDUCED [None]
